FAERS Safety Report 26126333 (Version 2)
Quarter: 2025Q4

REPORT INFORMATION
  Report Type: Spontaneous
  Country: US (occurrence: US)
  Receive Date: 20251205
  Receipt Date: 20251217
  Transmission Date: 20260117
  Serious: No
  Sender: VERTEX
  Company Number: US-VERTEX PHARMACEUTICALS-2025-020155

PATIENT
  Sex: Male

DRUGS (4)
  1. TRIKAFTA [Suspect]
     Active Substance: ELEXACAFTOR\IVACAFTOR\TEZACAFTOR
     Indication: Cystic fibrosis
     Dosage: GRANULES (80MG ELEXA/ 40MG TEZA/ 60MG IVA AND 59.5MG IVA) AN UNKNOWN FREQ
     Route: 061
  2. TRIKAFTA [Suspect]
     Active Substance: ELEXACAFTOR\IVACAFTOR\TEZACAFTOR
     Dosage: DECREASED DOSE TO HALF PACKETS
     Route: 061
  3. TRIKAFTA [Suspect]
     Active Substance: ELEXACAFTOR\IVACAFTOR\TEZACAFTOR
     Dosage: 1 ORANGE TAB EVERY OTHER DAY (100MG ELEXA/ 50MG TEZA/ 75MG IVA AND 150MG IVA)
     Route: 061
  4. TRIKAFTA [Suspect]
     Active Substance: ELEXACAFTOR\IVACAFTOR\TEZACAFTOR
     Dosage: 1 ORANGE TAB ON MON AND THU (100MG ELEXA/ 50MG TEZA/ 75MG IVA AND 150MG IVA)
     Route: 061

REACTIONS (1)
  - Liver function test increased [Unknown]
